FAERS Safety Report 14089173 (Version 4)
Quarter: 2018Q2

REPORT INFORMATION
  Report Type: Report from Study
  Country: None (occurrence: US)
  Receive Date: 20171014
  Receipt Date: 20180621
  Transmission Date: 20180711
  Serious: Yes (Other)
  Sender: FDA-Public Use
  Company Number: US-ABBVIE-17K-163-2073217-00

PATIENT
  Sex: Male

DRUGS (1)
  1. HUMIRA [Suspect]
     Active Substance: ADALIMUMAB
     Indication: RHEUMATOID ARTHRITIS
     Route: 058

REACTIONS (12)
  - Wrong technique in product usage process [Unknown]
  - Sensitivity to weather change [Not Recovered/Not Resolved]
  - Sciatic nerve injury [Unknown]
  - Injection site pain [Unknown]
  - Sciatica [Not Recovered/Not Resolved]
  - Osteoarthritis [Unknown]
  - Rheumatoid arthritis [Not Recovered/Not Resolved]
  - Surgical failure [Unknown]
  - Vascular injury [Unknown]
  - Fatigue [Unknown]
  - Intervertebral disc protrusion [Unknown]
  - Nerve root compression [Unknown]

NARRATIVE: CASE EVENT DATE: 2013
